FAERS Safety Report 4388183-3 (Version None)
Quarter: 2004Q3

REPORT INFORMATION
  Report Type: 
  Country: None (occurrence: None)
  Receive Date: 20040701
  Receipt Date: 20040624
  Transmission Date: 20050211
  Serious: Yes (Hospitalization)
  Sender: FDA-Public Use
  Company Number: PHHO2004CO09087

PATIENT
  Age: 38 Year
  Sex: Female

DRUGS (2)
  1. MYFORTIC [Suspect]
     Indication: RENAL TRANSPLANT
     Dosage: 180 MG / DAY
     Route: 048
     Dates: start: 20031001
  2. MYFORTIC [Suspect]
     Dosage: 180 MG / DAY
     Route: 048

REACTIONS (1)
  - GASTRITIS [None]
